FAERS Safety Report 18576290 (Version 1)
Quarter: 2020Q4

REPORT INFORMATION
  Report Type: Report from Study
  Country: CA (occurrence: CA)
  Receive Date: 20201203
  Receipt Date: 20201203
  Transmission Date: 20210114
  Serious: Yes (Hospitalization, Other)
  Sender: FDA-Public Use
  Company Number: CA-TAKEDA-2016TUS000729

PATIENT
  Age: 19 Year
  Sex: Male

DRUGS (8)
  1. METHOTREXATE. [Suspect]
     Active Substance: METHOTREXATE
     Indication: PRODUCT USED FOR UNKNOWN INDICATION
     Dosage: 10 MG, 1/WEEK
     Route: 065
     Dates: start: 201601
  2. VEDOLIZUMAB [Suspect]
     Active Substance: VEDOLIZUMAB
     Indication: COLITIS ULCERATIVE
     Dosage: 300 MILLIGRAM
     Route: 042
     Dates: start: 20151203
  3. VEDOLIZUMAB [Suspect]
     Active Substance: VEDOLIZUMAB
     Dosage: 300 MILLIGRAM, Q4WEEKS
     Route: 042
     Dates: start: 20160608
  4. VEDOLIZUMAB [Suspect]
     Active Substance: VEDOLIZUMAB
     Dosage: 300 MILLIGRAM, Q4WEEKS
     Route: 042
  5. FOLIC ACID. [Concomitant]
     Active Substance: FOLIC ACID
     Dosage: UNK UNK, QD
  6. IRON [Concomitant]
     Active Substance: IRON
     Dosage: UNK
  7. REMICADE [Concomitant]
     Active Substance: INFLIXIMAB
     Dosage: UNK
     Route: 042
  8. VEDOLIZUMAB [Suspect]
     Active Substance: VEDOLIZUMAB
     Dosage: 300 MILLIGRAM, Q4WEEKS
     Route: 042

REACTIONS (4)
  - Colitis [Unknown]
  - Haematochezia [Unknown]
  - Weight decreased [Unknown]
  - Off label use [Unknown]

NARRATIVE: CASE EVENT DATE: 20160112
